FAERS Safety Report 8905381 (Version 1)
Quarter: 2012Q4

REPORT INFORMATION
  Report Type: 
  Country: US (occurrence: US)
  Receive Date: 20121112
  Receipt Date: 20121112
  Transmission Date: 20130627
  Serious: Yes (Hospitalization)
  Sender: FDA-Public Use
  Company Number: US-BAYER-2012-116939

PATIENT
  Age: 21 Year
  Sex: Female
  Weight: 79 kg

DRUGS (10)
  1. YAZ [Suspect]
     Indication: BIRTH CONTROL
     Dosage: UNK
     Dates: end: 20110930
  2. GIANVI [Suspect]
  3. SEROQUEL [Concomitant]
     Dosage: 525 mg, qhs (every hours of sleep)
     Route: 048
  4. LITHIUM [Concomitant]
     Dosage: 1050 mg, qhs
     Route: 048
  5. NEURONTIN [Concomitant]
     Dosage: 200 mg, qhs
     Route: 048
  6. CELEXA [Concomitant]
     Dosage: 40 mg, qhs
     Route: 048
  7. GABAPENTIN [Concomitant]
  8. TYLENOL [Concomitant]
  9. ARIXTRA [Concomitant]
  10. CITALOPRAM [Concomitant]

REACTIONS (1)
  - Pulmonary embolism [None]
